FAERS Safety Report 5591394-2 (Version None)
Quarter: 2008Q1

REPORT INFORMATION
  Report Type: 
  Country: None (occurrence: None)
  Receive Date: 20080115
  Receipt Date: 20080107
  Transmission Date: 20080703
  Serious: Yes (Hospitalization)
  Sender: FDA-Public Use
  Company Number: AU-ASTRAZENECA-2008AP00321

PATIENT
  Age: 28686 Day
  Sex: Female
  Weight: 90 kg

DRUGS (11)
  1. SYMBICORT [Suspect]
     Indication: ASTHMA
     Dosage: 2.0UG/DAY
     Route: 055
  2. PREDNISOLONE [Suspect]
     Indication: ASTHMA
  3. OMEPRAZOLE [Concomitant]
  4. CLOPIDOGREL [Concomitant]
  5. SODIUM CROMOGLYCATE [Concomitant]
     Indication: ASTHMA
  6. SPIRONOLACTONE [Concomitant]
  7. TELMISARTAN [Concomitant]
     Indication: ESSENTIAL HYPERTENSION
  8. FUROSEMIDE [Concomitant]
     Indication: ESSENTIAL HYPERTENSION
  9. HYDRALAZINE HYDROCHLORIDE [Concomitant]
     Indication: ESSENTIAL HYPERTENSION
  10. NICORANDIL [Concomitant]
     Indication: ANGINA PECTORIS
  11. MIXTARD HUMAN 70/30 [Concomitant]
     Indication: DIABETES MELLITUS
     Route: 042

REACTIONS (6)
  - ACUTE MYOCARDIAL INFARCTION [None]
  - ADRENAL INSUFFICIENCY [None]
  - BLOOD CORTISOL DECREASED [None]
  - HYPOTENSION [None]
  - MYOPATHY [None]
  - OSTEOPOROSIS [None]
